FAERS Safety Report 6925140-4 (Version None)
Quarter: 2010Q3

REPORT INFORMATION
  Report Type: 
  Country: None (occurrence: None)
  Receive Date: 20100810
  Receipt Date: 20100729
  Transmission Date: 20110219
  Serious: Yes (Hospitalization)
  Sender: FDA-Public Use
  Company Number: 016437

PATIENT
  Age: 21 Year
  Sex: Male

DRUGS (1)
  1. LACOSAMIDE [Suspect]
     Dosage: 50 MG BID, (100 MG BID)

REACTIONS (1)
  - SUBARACHNOID HAEMORRHAGE [None]
